APPROVED DRUG PRODUCT: NEGGRAM
Active Ingredient: NALIDIXIC ACID
Strength: 250MG/5ML
Dosage Form/Route: SUSPENSION;ORAL
Application: N017430 | Product #001
Applicant: SANOFI AVENTIS US LLC
Approved: Approved Prior to Jan 1, 1982 | RLD: No | RS: No | Type: DISCN